FAERS Safety Report 4770871-8 (Version None)
Quarter: 2005Q3

REPORT INFORMATION
  Report Type: 
  Country: None (occurrence: None)
  Receive Date: 20050915
  Receipt Date: 20050824
  Transmission Date: 20060218
  Serious: Yes (Other)
  Sender: FDA-Public Use
  Company Number: GB-ROCHE-415425

PATIENT
  Age: 73 Year
  Sex: Female
  Weight: 64 kg

DRUGS (10)
  1. XENICAL [Suspect]
     Indication: OVERWEIGHT
     Dosage: SECOND INDICATION OF POOR DIABETES MELLITUS CONTROL
     Route: 048
     Dates: start: 20040603, end: 20050817
  2. UNSPECIFIED DRUG [Concomitant]
  3. SIMVASTATIN [Concomitant]
     Dosage: AT NIGHT
  4. GLICLAZIDE [Concomitant]
  5. UNSPECIFIED DRUG [Concomitant]
     Dosage: REPORTED AS ACTIVE COLOR STRIPS (ROCHE DIAGN)
  6. METFORMIN [Concomitant]
  7. NIZATIDINE [Concomitant]
  8. HYPROMELLOSE [Concomitant]
     Dosage: REPORTED AS EYE DROPS
  9. XALATAN [Concomitant]
     Dosage: REPORTED AS EYE DROPS
  10. SALIVIX [Concomitant]
     Dosage: TAKEN AS DIRECTED REPORTED AS SALIVIX ARTIFICIAL SALIVA PAST

REACTIONS (1)
  - BLOOD CREATININE INCREASED [None]
